FAERS Safety Report 7958038-3 (Version None)
Quarter: 2011Q4

REPORT INFORMATION
  Report Type: 
  Country: None (occurrence: None)
  Receive Date: 20111205
  Receipt Date: 20111125
  Transmission Date: 20120403
  Serious: Yes (Other)
  Sender: FDA-Public Use
  Company Number: JP-ASTRAZENECA-2011SE71492

PATIENT
  Age: 38 Year
  Sex: Female

DRUGS (2)
  1. XYLOCAINE VISCOUS [Suspect]
     Route: 049
     Dates: start: 20111121
  2. XYLOCAINE [Suspect]
     Route: 049
     Dates: start: 20111121

REACTIONS (5)
  - HYPOACUSIS [None]
  - ARRHYTHMIA [None]
  - TACHYCARDIA [None]
  - PHARYNGEAL OEDEMA [None]
  - RASH [None]
